FAERS Safety Report 9262880 (Version 1)
Quarter: 2013Q2

REPORT INFORMATION
  Report Type: Spontaneous
  Country: US (occurrence: US)
  Receive Date: 20130430
  Receipt Date: 20130430
  Transmission Date: 20140414
  Serious: Yes (Other)
  Sender: FDA-Public Use
  Company Number: PHEH2013US009431

PATIENT
  Sex: Female

DRUGS (7)
  1. DIOVAN [Suspect]
     Dosage: 160 MG, BID
  2. VITAMIN C [Concomitant]
  3. VITAMIN E [Concomitant]
  4. IRON [Concomitant]
  5. CALCIUM [Concomitant]
  6. CRESTOR [Concomitant]
  7. MULTI-VIT [Concomitant]

REACTIONS (1)
  - Nephropathy [Unknown]
